FAERS Safety Report 18951634 (Version 1)
Quarter: 2021Q1

REPORT INFORMATION
  Report Type: Spontaneous
  Country: US (occurrence: US)
  Receive Date: 20210301
  Receipt Date: 20210301
  Transmission Date: 20210420
  Serious: No
  Sender: FDA-Public Use
  Company Number: US-MTPC-MTDA2021-0004994

PATIENT
  Sex: Female

DRUGS (4)
  1. RADICAVA [Suspect]
     Active Substance: EDARAVONE
     Indication: AMYOTROPHIC LATERAL SCLEROSIS
     Dosage: 60 MILLIGRAM, QD FOR 21 OUT OF 28 DAYS
     Route: 042
     Dates: start: 201709
  2. RADICAVA [Suspect]
     Active Substance: EDARAVONE
     Dosage: 21/28 DAYS CYCLE
     Route: 042
     Dates: start: 201903
  3. NUEDEXTA [Concomitant]
     Active Substance: DEXTROMETHORPHAN HYDROBROMIDE\QUINIDINE SULFATE
     Indication: PRODUCT USED FOR UNKNOWN INDICATION
     Dosage: UNK
     Route: 065
  4. RADICAVA [Suspect]
     Active Substance: EDARAVONE
     Dosage: 17/28 DAYS CYCLE
     Route: 042
     Dates: start: 201811

REACTIONS (1)
  - Therapeutic response unexpected [Unknown]
